FAERS Safety Report 8882534 (Version 1)
Quarter: 2012Q4

REPORT INFORMATION
  Report Type: 
  Country: ES (occurrence: ES)
  Receive Date: 20121102
  Receipt Date: 20121102
  Transmission Date: 20130627
  Serious: Yes (Hospitalization, Other)
  Sender: FDA-Public Use
  Company Number: ES-ELI_LILLY_AND_COMPANY-ES201210006461

PATIENT
  Sex: Female

DRUGS (8)
  1. FORSTEO [Suspect]
     Indication: OSTEOPOROSIS
     Dosage: 20 ug, qd
     Route: 058
     Dates: start: 20120724
  2. ATORVASTATIN [Concomitant]
     Indication: HYPERCHOLESTEROLAEMIA
     Dosage: 20 mg, qd
     Route: 048
  3. ESCITALOPRAM [Concomitant]
     Dosage: 20 mg, qd
     Route: 048
  4. VALSARTAN [Concomitant]
     Indication: BLOOD PRESSURE INCREASED
     Dosage: 160 mg, qd
     Route: 048
  5. METFORMIN [Concomitant]
     Indication: DIABETES MELLITUS
     Dosage: 850 mg, qd
     Route: 048
  6. LORAZEPAM [Concomitant]
     Indication: INSOMNIA
     Dosage: 5 mg, qd
  7. OMEPRAZOLE [Concomitant]
     Dosage: 20 mg, qd
     Route: 048
  8. PARACETAMOL [Concomitant]
     Indication: PAIN
     Dosage: 1 g, prn
     Route: 048

REACTIONS (2)
  - Cardiac pacemaker insertion [Recovered/Resolved]
  - Syncope [Unknown]
